FAERS Safety Report 5840649-2 (Version None)
Quarter: 2008Q3

REPORT INFORMATION
  Report Type: 
  Country: None (occurrence: None)
  Receive Date: 20080811
  Receipt Date: 20080730
  Transmission Date: 20090109
  Serious: Yes (Hospitalization, Other)
  Sender: FDA-Public Use
  Company Number: PHHY2008JP14379

PATIENT
  Sex: Male
  Weight: 78 kg

DRUGS (4)
  1. LAMISIL [Suspect]
     Indication: ONYCHOMYCOSIS
     Dosage: 125MG/ DAY
     Route: 048
     Dates: start: 20080618, end: 20080710
  2. HARNAL [Concomitant]
     Indication: BENIGN PROSTATIC HYPERPLASIA
     Dosage: 1 DF, UNK
     Route: 048
  3. NORVASC [Concomitant]
     Indication: HYPERTENSION
     Dosage: 1 DF, UNK
     Route: 048
  4. BLOPRESS [Concomitant]
     Indication: HYPERTENSION
     Dosage: 1 DF, UNK
     Route: 048

REACTIONS (9)
  - ADHESION [None]
  - BLOOD CHOLINESTERASE INCREASED [None]
  - BODY TEMPERATURE INCREASED [None]
  - C-REACTIVE PROTEIN INCREASED [None]
  - DRUG ERUPTION [None]
  - GENERALISED ERYTHEMA [None]
  - HAEMOGLOBIN DECREASED [None]
  - PRURITUS [None]
  - WHITE BLOOD CELL COUNT INCREASED [None]
